FAERS Safety Report 24281476 (Version 1)
Quarter: 2024Q3

REPORT INFORMATION
  Report Type: Report from Study
  Country: GR (occurrence: GR)
  Receive Date: 20240904
  Receipt Date: 20240904
  Transmission Date: 20241017
  Serious: Yes (Death, Hospitalization)
  Sender: IPSEN
  Company Number: None

PATIENT
  Age: 75 Year
  Sex: Male
  Weight: 100 kg

DRUGS (2)
  1. ONIVYDE [Suspect]
     Active Substance: IRINOTECAN HYDROCHLORIDE
     Indication: Neoplasm
     Dosage: DOSE OF MOST RECENT DOSE (115 MG) PRIOR TO AE/SAE: ON 24-JUL-2024
     Route: 042
     Dates: start: 20240612, end: 20240726
  2. FLUOROURACIL [Suspect]
     Active Substance: FLUOROURACIL
     Indication: Neoplasm
     Dosage: DOSE OF MOST RECENT DOSE (1275 MG) PRIOR TO AE/SAE: ON 24-JUL-2024
     Route: 042
     Dates: start: 20240612, end: 20240726

REACTIONS (1)
  - Abdominal pain [Fatal]

NARRATIVE: CASE EVENT DATE: 20240730
